FAERS Safety Report 12476267 (Version 1)
Quarter: 2016Q2

REPORT INFORMATION
  Report Type: Spontaneous
  Country: FR (occurrence: FR)
  Receive Date: 20160617
  Receipt Date: 20160617
  Transmission Date: 20160815
  Serious: Yes (Other)
  Sender: FDA-Public Use
  Company Number: FR-CIPLA LTD.-2016FR06659

PATIENT

DRUGS (5)
  1. FLUOROURACIL. [Suspect]
     Active Substance: FLUOROURACIL
     Dosage: 2400 MG/M2, 46 HOUR INFUSION
     Route: 042
  2. GEMCITABINE [Suspect]
     Active Substance: GEMCITABINE\GEMCITABINE HYDROCHLORIDE
     Indication: METASTATIC CARCINOID TUMOUR
     Dosage: 1000 MG/M2, 30 MINS, EVERY 2 WEEKS
     Route: 042
  3. FLUOROURACIL. [Suspect]
     Active Substance: FLUOROURACIL
     Indication: METASTATIC CARCINOID TUMOUR
     Dosage: 400 MG/M2, AS A 10 MIN BOLUS INJECTION
     Route: 042
  4. OXALIPLATIN. [Suspect]
     Active Substance: OXALIPLATIN
     Indication: METASTATIC CARCINOID TUMOUR
     Dosage: 100 MG/M2 OR 85 MG/M2, FOR 2 HOURS, EVERY 2 WEEKS
     Route: 042
  5. LEUCOVORIN. [Suspect]
     Active Substance: LEUCOVORIN
     Indication: METASTATIC CARCINOID TUMOUR
     Dosage: 400 MG/M2, 2 HOUR INFUSION
     Route: 042

REACTIONS (1)
  - Neurotoxicity [Unknown]
